FAERS Safety Report 13701055 (Version 1)
Quarter: 2017Q2

REPORT INFORMATION
  Report Type: Spontaneous
  Country: US (occurrence: US)
  Receive Date: 20170628
  Receipt Date: 20170628
  Transmission Date: 20170830
  Serious: Yes (Disabling)
  Sender: FDA-Public Use
  Company Number: None

PATIENT
  Age: 85 Year
  Sex: Male
  Weight: 106.2 kg

DRUGS (11)
  1. IPOPRPIEM [Concomitant]
  2. ALLUPURINAL [Concomitant]
  3. BABY ASPIRIN [Concomitant]
     Active Substance: ASPIRIN
  4. FISH OIL [Concomitant]
     Active Substance: FISH OIL
  5. OXYGEN. [Concomitant]
     Active Substance: OXYGEN
  6. LISINOPRIL. [Concomitant]
     Active Substance: LISINOPRIL
  7. LEVOTHYROXINE. [Concomitant]
     Active Substance: LEVOTHYROXINE
  8. ALBUTEROL. [Concomitant]
     Active Substance: ALBUTEROL
  9. WATER PILLS [Concomitant]
     Active Substance: UNSPECIFIED INGREDIENT
  10. VITAMIN D [Concomitant]
     Active Substance: CHOLECALCIFEROL
  11. BREO ELLIPTA [Suspect]
     Active Substance: FLUTICASONE FUROATE\VILANTEROL TRIFENATATE
     Indication: CHRONIC OBSTRUCTIVE PULMONARY DISEASE
     Dosage: OTHER STRENGTH:MCG;QUANTITY:14 PUFF(S);?
     Route: 055
     Dates: start: 20170627, end: 20170628

REACTIONS (3)
  - Aphonia [None]
  - Pallor [None]
  - Lethargy [None]

NARRATIVE: CASE EVENT DATE: 20170627
